FAERS Safety Report 9870338 (Version 1)
Quarter: 2014Q1

REPORT INFORMATION
  Report Type: Spontaneous
  Country: DK (occurrence: DK)
  Receive Date: 20140205
  Receipt Date: 20140205
  Transmission Date: 20141002
  Serious: Yes (Disabling)
  Sender: FDA-Public Use
  Company Number: DK-TEVA-460115ISR

PATIENT
  Age: 48 Year
  Sex: Female

DRUGS (5)
  1. EPIRUBICIN [Suspect]
     Indication: CHEMOTHERAPY
     Dates: start: 20050329, end: 20050811
  2. CYCLOPHOSPHAMIDE [Suspect]
     Indication: CHEMOTHERAPY
     Dates: start: 20050329, end: 20050811
  3. FLUOROURACIL [Suspect]
     Indication: CHEMOTHERAPY
     Dates: start: 20050329, end: 20050811
  4. TAMOXIFEN [Concomitant]
  5. ARIMIDEX [Concomitant]
     Dates: end: 20101022

REACTIONS (9)
  - Memory impairment [Unknown]
  - Disturbance in attention [Unknown]
  - Arthralgia [Unknown]
  - Periodontitis [Unknown]
  - Asthenia [Unknown]
  - Motor dysfunction [Unknown]
  - Osteoporosis [Unknown]
  - Fatigue [Unknown]
  - Muscle atrophy [Unknown]
